FAERS Safety Report 10093815 (Version 1)
Quarter: 2014Q2

REPORT INFORMATION
  Report Type: Spontaneous
  Country: US (occurrence: US)
  Receive Date: 20140421
  Receipt Date: 20140421
  Transmission Date: 20141212
  Serious: No
  Sender: FDA-Public Use
  Company Number: US-SA-2014SA013747

PATIENT
  Age: 83 Year
  Sex: Male

DRUGS (3)
  1. ALLEGRA [Suspect]
     Route: 048
     Dates: start: 20140110
  2. OTHER LIPID MODIFYING AGENTS [Concomitant]
     Indication: BLOOD CHOLESTEROL
  3. OTHER LIPID MODIFYING AGENTS [Concomitant]
     Indication: BLOOD PRESSURE

REACTIONS (2)
  - Drug ineffective [Unknown]
  - Drug dose omission [Unknown]
